FAERS Safety Report 6020259-7 (Version None)
Quarter: 2008Q4

REPORT INFORMATION
  Report Type: 
  Country: None (occurrence: None)
  Receive Date: 20081226
  Receipt Date: 20081217
  Transmission Date: 20090506
  Serious: Yes (Other)
  Sender: FDA-Public Use
  Company Number: PHHY2008FR31295

PATIENT
  Sex: Female
  Weight: 44 kg

DRUGS (2)
  1. ACLASTA [Suspect]
     Indication: OSTEOPOROSIS POSTMENOPAUSAL
     Dosage: 5 MG
     Route: 042
     Dates: start: 20081127
  2. TARDYFERON [Interacting]
     Indication: IRON DEFICIENCY ANAEMIA
     Dosage: 1 DF, QD
     Dates: start: 20080814, end: 20081208

REACTIONS (4)
  - DIZZINESS [None]
  - DRUG INTERACTION [None]
  - HEADACHE [None]
  - PRESYNCOPE [None]
